FAERS Safety Report 5382212-6 (Version None)
Quarter: 2007Q3

REPORT INFORMATION
  Report Type: 
  Country: None (occurrence: None)
  Receive Date: 20070709
  Receipt Date: 20070627
  Transmission Date: 20080115
  Serious: Yes (Other)
  Sender: FDA-Public Use
  Company Number: FR-PFIZER INC-2007053748

PATIENT
  Age: 28 Year
  Sex: Female

DRUGS (2)
  1. LYRICA [Suspect]
     Indication: DIABETIC NEUROPATHY
  2. INSULIN [Concomitant]

REACTIONS (2)
  - DIARRHOEA [None]
  - HYPOGLYCAEMIC COMA [None]
